FAERS Safety Report 6334734-9 (Version None)
Quarter: 2009Q3

REPORT INFORMATION
  Report Type: 
  Country: None (occurrence: None)
  Receive Date: 20090831
  Receipt Date: 20090819
  Transmission Date: 20100115
  Serious: Yes (Life-Threatening, Hospitalization, Other)
  Sender: FDA-Public Use
  Company Number: JP-PFIZER INC-2009255668

PATIENT
  Age: 67 Year

DRUGS (1)
  1. ALDACTONE [Suspect]
     Indication: PROPHYLAXIS
     Dosage: 25 MG, 1X/DAY
     Route: 048
     Dates: end: 20090811

REACTIONS (1)
  - BONE MARROW FAILURE [None]
